FAERS Safety Report 7412448-1 (Version None)
Quarter: 2011Q2

REPORT INFORMATION
  Report Type: 
  Country: None (occurrence: None)
  Receive Date: 20110408
  Receipt Date: 20110408
  Transmission Date: 20111010
  Serious: Yes (Life-Threatening, Hospitalization)
  Sender: FDA-Public Use
  Company Number: None

PATIENT
  Age: 57 Year
  Sex: Male
  Weight: 74.3 kg

DRUGS (1)
  1. METHOTREXATE [Suspect]
     Indication: PSORIATIC ARTHROPATHY
     Dosage: 7.5 MG WEEKLY PO
     Route: 048

REACTIONS (5)
  - BRAIN ABSCESS [None]
  - PULMONARY FIBROSIS [None]
  - TOOTH INFECTION [None]
  - LOWER RESPIRATORY TRACT INFLAMMATION [None]
  - PNEUMONIA [None]
